FAERS Safety Report 6858611-X (Version None)
Quarter: 2010Q3

REPORT INFORMATION
  Report Type: 
  Country: None (occurrence: None)
  Receive Date: 20100719
  Receipt Date: 20080401
  Transmission Date: 20110219
  Serious: No
  Sender: FDA-Public Use
  Company Number: US-PFIZER INC-2008012978

PATIENT
  Sex: Male

DRUGS (4)
  1. CHANTIX [Suspect]
     Indication: SMOKING CESSATION THERAPY
  2. ZOLOFT [Concomitant]
  3. PREVACID [Concomitant]
  4. ZYRTEC [Concomitant]

REACTIONS (4)
  - COUGH [None]
  - HEADACHE [None]
  - HUNGER [None]
  - NAUSEA [None]
